FAERS Safety Report 7690256-4 (Version None)
Quarter: 2011Q3

REPORT INFORMATION
  Report Type: 
  Country: None (occurrence: None)
  Receive Date: 20110817
  Receipt Date: 20110817
  Transmission Date: 20111222
  Serious: Yes (Disabling)
  Sender: FDA-Public Use
  Company Number: None

PATIENT
  Age: 66 Year
  Sex: Female
  Weight: 52.6173 kg

DRUGS (1)
  1. AVELOX [Suspect]
     Indication: INFLUENZA
     Dates: start: 20101214, end: 20101219

REACTIONS (3)
  - CLOSTRIDIAL INFECTION [None]
  - DIARRHOEA HAEMORRHAGIC [None]
  - DIVERTICULUM [None]
